FAERS Safety Report 22177944 (Version 1)
Quarter: 2023Q2

REPORT INFORMATION
  Report Type: Spontaneous
  Country: FR (occurrence: FR)
  Receive Date: 20230405
  Receipt Date: 20230405
  Transmission Date: 20230722
  Serious: Yes (Other)
  Sender: FDA-Public Use
  Company Number: None

PATIENT
  Age: 64 Year
  Sex: Male
  Weight: 68 kg

DRUGS (3)
  1. INLYTA [Interacting]
     Active Substance: AXITINIB
     Indication: Renal cell carcinoma
     Dosage: 5 MG, 2X/DAY
     Route: 048
     Dates: start: 20211215, end: 20220228
  2. INLYTA [Interacting]
     Active Substance: AXITINIB
     Dosage: 7 MG, 2X/DAY
     Route: 048
     Dates: start: 20220330
  3. BISOPROLOL FUMARATE\PERINDOPRIL ARGININE [Interacting]
     Active Substance: BISOPROLOL FUMARATE\PERINDOPRIL ARGININE
     Indication: Hypertension
     Dosage: 0.5 DF, 1X/DAY (1/2 TABLET IN THE MORNING)
     Route: 048
     Dates: start: 20230203, end: 20230324

REACTIONS (2)
  - Hyperkalaemia [Not Recovered/Not Resolved]
  - Drug interaction [Not Recovered/Not Resolved]

NARRATIVE: CASE EVENT DATE: 20230320
